FAERS Safety Report 5712608-1 (Version None)
Quarter: 2008Q2

REPORT INFORMATION
  Report Type: 
  Country: None (occurrence: None)
  Receive Date: 20080422
  Receipt Date: 20080415
  Transmission Date: 20081010
  Serious: Yes (Hospitalization)
  Sender: FDA-Public Use
  Company Number: US-ASTRAZENECA-2008UW02748

PATIENT
  Sex: Female

DRUGS (3)
  1. ZESTRIL [Suspect]
     Route: 048
     Dates: start: 19980101
  2. PAXIL [Concomitant]
  3. HYDROCHLOROTHIAZIDE [Concomitant]

REACTIONS (2)
  - HYPONATRAEMIA [None]
  - IRRITABLE BOWEL SYNDROME [None]
